FAERS Safety Report 13515559 (Version 6)
Quarter: 2017Q2

REPORT INFORMATION
  Report Type: Spontaneous
  Country: US (occurrence: US)
  Receive Date: 20170504
  Receipt Date: 20170627
  Transmission Date: 20170830
  Serious: Yes (Hospitalization)
  Sender: FDA-Public Use
  Company Number: US-ACTELION-A-US2017-153273

PATIENT
  Age: 57 Year
  Sex: Female
  Weight: 84.35 kg

DRUGS (10)
  1. UPTRAVI [Suspect]
     Active Substance: SELEXIPAG
     Dosage: 1200 MCG, BID
     Route: 048
  2. UPTRAVI [Suspect]
     Active Substance: SELEXIPAG
     Dosage: 1400 MCG, BID
     Route: 048
  3. COUMADIN [Concomitant]
     Active Substance: WARFARIN SODIUM
  4. UPTRAVI [Suspect]
     Active Substance: SELEXIPAG
     Indication: PULMONARY ARTERIAL HYPERTENSION
     Dosage: 400 MCG, BID
     Route: 048
  5. UPTRAVI [Suspect]
     Active Substance: SELEXIPAG
     Dosage: 800 MCG, BID
     Route: 048
  6. UPTRAVI [Suspect]
     Active Substance: SELEXIPAG
     Dosage: 1000 MCG, BID
     Route: 048
     Dates: start: 20170511
  7. LETAIRIS [Suspect]
     Active Substance: AMBRISENTAN
     Indication: PULMONARY ARTERIAL HYPERTENSION
     Dosage: 10 MG, QD
     Route: 065
     Dates: start: 20150129
  8. UPTRAVI [Suspect]
     Active Substance: SELEXIPAG
     Dosage: 1600 MCG, BID
     Route: 048
     Dates: start: 201706
  9. UPTRAVI [Suspect]
     Active Substance: SELEXIPAG
     Dosage: 600 MCG, BID
     Route: 048
  10. WARFARIN [Concomitant]
     Active Substance: WARFARIN

REACTIONS (26)
  - Dyspnoea [Unknown]
  - Ocular hyperaemia [Unknown]
  - Chest pain [Unknown]
  - Vomiting [Unknown]
  - Eye swelling [Unknown]
  - Myalgia [Unknown]
  - Palpitations [Unknown]
  - Nausea [Unknown]
  - Swelling face [Unknown]
  - Nervousness [Unknown]
  - Flushing [Unknown]
  - Painful respiration [Unknown]
  - Pain in jaw [Unknown]
  - Oropharyngeal pain [Unknown]
  - Feeding disorder [Unknown]
  - Erythema [Unknown]
  - Pharyngitis streptococcal [Unknown]
  - Tremor [Unknown]
  - Diarrhoea [Unknown]
  - Musculoskeletal pain [Recovering/Resolving]
  - Condition aggravated [Unknown]
  - Pain [Unknown]
  - Cardiac disorder [Unknown]
  - Headache [Unknown]
  - Feeling abnormal [Unknown]
  - Back pain [Unknown]
